FAERS Safety Report 4572118-4 (Version None)
Quarter: 2005Q1

REPORT INFORMATION
  Report Type: 
  Country: None (occurrence: None)
  Receive Date: 20050202
  Receipt Date: 20050119
  Transmission Date: 20050727
  Serious: No
  Sender: FDA-Public Use
  Company Number: USA041082013

PATIENT
  Age: 34 Year
  Sex: Female

DRUGS (1)
  1. HUMATROPE [Suspect]
     Indication: HYPOTHALAMO-PITUITARY DISORDERS

REACTIONS (3)
  - ENERGY INCREASED [None]
  - MEMORY IMPAIRMENT [None]
  - SLEEP DISORDER [None]
